FAERS Safety Report 12956598 (Version 1)
Quarter: 2016Q4

REPORT INFORMATION
  Report Type: Spontaneous
  Country: FR (occurrence: FR)
  Receive Date: 20161118
  Receipt Date: 20161118
  Transmission Date: 20170207
  Serious: Yes (Hospitalization)
  Sender: FDA-Public Use
  Company Number: FR-GUERBET LLC-1059757

PATIENT
  Age: 45 Year
  Sex: Female

DRUGS (1)
  1. DOTAREM [Suspect]
     Active Substance: GADOTERATE MEGLUMINE
     Indication: NUCLEAR MAGNETIC RESONANCE IMAGING BRAIN
     Route: 042
     Dates: start: 20161107, end: 20161107

REACTIONS (3)
  - Urticaria [Recovering/Resolving]
  - Type I hypersensitivity [Recovering/Resolving]
  - Laryngeal discomfort [Recovering/Resolving]

NARRATIVE: CASE EVENT DATE: 20161107
